FAERS Safety Report 8977619 (Version 2)
Quarter: 2013Q1

REPORT INFORMATION
  Report Type: Spontaneous
  Country: US (occurrence: US)
  Receive Date: 20121220
  Receipt Date: 20130109
  Transmission Date: 20140127
  Serious: Yes (Death)
  Sender: FDA-Public Use
  Company Number: US-GLAXOSMITHKLINE-A1006086A

PATIENT
  Age: 77 Year
  Sex: Male
  Weight: 112.3 kg

DRUGS (2)
  1. PROMACTA [Suspect]
     Indication: IDIOPATHIC THROMBOCYTOPENIC PURPURA
     Dosage: 75MG PER DAY
     Route: 048
     Dates: start: 20120622, end: 20120724
  2. PHENOBARBITAL [Concomitant]

REACTIONS (2)
  - Chronic lymphocytic leukaemia [Fatal]
  - Epistaxis [Unknown]
